FAERS Safety Report 9396622 (Version 1)
Quarter: 2013Q3

REPORT INFORMATION
  Report Type: Spontaneous
  Country: US (occurrence: US)
  Receive Date: 20130711
  Receipt Date: 20130711
  Transmission Date: 20140515
  Serious: Yes (Other)
  Sender: FDA-Public Use
  Company Number: US-RB-055886-13

PATIENT
  Age: 48 Year
  Sex: Female

DRUGS (4)
  1. SUBOXONE FILM [Suspect]
     Indication: DRUG DEPENDENCE
     Dosage: SUBOXONE FILM
     Route: 060
     Dates: start: 201304, end: 20130626
  2. CYMBALTA [Concomitant]
     Indication: DEPRESSION
     Dosage: DOSING DETAILS UNKNOWN
     Route: 048
  3. LAMICTAL [Concomitant]
     Indication: AFFECTIVE DISORDER
     Dosage: DOSING DETAILS UNKNOWN
     Route: 048
  4. MARIJUANA [Concomitant]
     Indication: SUBSTANCE USE
     Dosage: DOSING DETAILS UNKNOWN; OCCASIONALLY
     Route: 055

REACTIONS (4)
  - Dyspnoea [Recovered/Resolved]
  - Pneumonia [Not Recovered/Not Resolved]
  - Drug withdrawal syndrome [Not Recovered/Not Resolved]
  - Vomiting [Not Recovered/Not Resolved]
